FAERS Safety Report 9816417 (Version 5)
Quarter: 2014Q2

REPORT INFORMATION
  Report Type: Spontaneous
  Country: GB (occurrence: GB)
  Receive Date: 20140114
  Receipt Date: 20140610
  Transmission Date: 20141212
  Serious: Yes (Life-Threatening)
  Sender: FDA-Public Use
  Company Number: GB-009507513-1401GBR004629

PATIENT
  Age: 51 Year
  Sex: Female
  Weight: 78 kg

DRUGS (10)
  1. JANUVIA [Suspect]
     Dosage: 100 MG, UNK
     Route: 048
     Dates: start: 2007, end: 201303
  2. VICTOZA [Suspect]
     Indication: TYPE 2 DIABETES MELLITUS
     Dosage: 1.2 MG, UNK
     Route: 058
     Dates: start: 200803, end: 201306
  3. INSULIN [Concomitant]
  4. EXENATIDE [Concomitant]
  5. CLOMIPRAMINE HYDROCHLORIDE [Concomitant]
     Dosage: UNK
     Dates: start: 19970404
  6. HUMULIN I [Concomitant]
     Route: 058
  7. BUSCOPAN [Concomitant]
     Route: 048
  8. OMEPRAZOLE [Concomitant]
     Dosage: 20 MG, UNK
     Route: 048
  9. PREGABALIN [Concomitant]
     Dosage: 75 MG, UNK
     Route: 048
  10. CHLORPROMAZINE [Concomitant]

REACTIONS (4)
  - Metastases to liver [Not Recovered/Not Resolved]
  - Cholangiocarcinoma [Not Recovered/Not Resolved]
  - Mastectomy [Unknown]
  - Breast cancer [Unknown]
